FAERS Safety Report 8103973-9 (Version None)
Quarter: 2012Q1

REPORT INFORMATION
  Report Type: 
  Country: None (occurrence: None)
  Receive Date: 20120201
  Receipt Date: 20120125
  Transmission Date: 20120608
  Serious: Yes (Other)
  Sender: FDA-Public Use
  Company Number: DE-B.I. PHARMACEUTICALS,INC./RIDGEFIELD-2012-DE-00269DE

PATIENT
  Age: 77 Year
  Sex: Male
  Weight: 80 kg

DRUGS (6)
  1. PRADAXA [Suspect]
     Indication: ATRIAL FIBRILLATION
     Dosage: 300 MG
     Dates: start: 20111201
  2. METOPROLOL 100 [Concomitant]
  3. TORASEMID 10 [Concomitant]
  4. PENTAERYTHRITOL TETRANITATE [Concomitant]
  5. SORTIS 40 [Concomitant]
  6. ASPIRIN [Concomitant]

REACTIONS (1)
  - RENAL FAILURE [None]
